FAERS Safety Report 4409792-9 (Version None)
Quarter: 2004Q3

REPORT INFORMATION
  Report Type: 
  Country: None (occurrence: None)
  Receive Date: 20040723
  Receipt Date: 20040719
  Transmission Date: 20050211
  Serious: Yes (Death, Hospitalization)
  Sender: FDA-Public Use
  Company Number: TAP2004Q00906

PATIENT
  Age: 77 Year
  Sex: Male

DRUGS (10)
  1. LUPRON DEPOT-4 [Suspect]
     Indication: PROSTATE CANCER
     Dosage: 30 MG, ONCE, INTRA-MUSCULAR
     Route: 030
     Dates: start: 20040507, end: 20040507
  2. COUMADIN [Concomitant]
  3. FLOMAX [Concomitant]
  4. ZESTRIL [Concomitant]
  5. LESCOL [Concomitant]
  6. GLUCOPHAGE [Concomitant]
  7. GLYBURIDE [Concomitant]
  8. TEMAZEPAM [Concomitant]
  9. LORTAB [Concomitant]
  10. AVANDIA [Concomitant]

REACTIONS (3)
  - ACUTE RESPIRATORY DISTRESS SYNDROME [None]
  - NAUSEA [None]
  - VOMITING [None]
